FAERS Safety Report 9461409 (Version 1)
Quarter: 2013Q3

REPORT INFORMATION
  Report Type: Spontaneous
  Country: US (occurrence: None)
  Receive Date: 20130814
  Receipt Date: 20130814
  Transmission Date: 20140515
  Serious: Yes (Disabling, Other)
  Sender: FDA-Public Use
  Company Number: None

PATIENT
  Age: 73 Year
  Sex: Female
  Weight: 64.86 kg

DRUGS (4)
  1. RECLAST [Suspect]
     Indication: OSTEOPOROSIS
     Dosage: 1 TIME SHOT INFUSION
     Dates: start: 20130624, end: 20130624
  2. PREDNISONE [Concomitant]
  3. BENADRYL [Concomitant]
  4. VITAMINS [Concomitant]

REACTIONS (4)
  - Asthenia [None]
  - Fatigue [None]
  - Sleep disorder [None]
  - Rash [None]
